FAERS Safety Report 14957343 (Version 1)
Quarter: 2018Q2

REPORT INFORMATION
  Report Type: Spontaneous
  Country: IT (occurrence: IT)
  Receive Date: 20180531
  Receipt Date: 20180531
  Transmission Date: 20180711
  Serious: Yes (Other)
  Sender: FDA-Public Use
  Company Number: IT-PFIZER INC-2018218572

PATIENT
  Age: 80 Year
  Sex: Female

DRUGS (5)
  1. NORVASC [Suspect]
     Active Substance: AMLODIPINE BESYLATE
     Route: 048
  2. SINEMET [Concomitant]
     Active Substance: CARBIDOPA\LEVODOPA
     Route: 048
  3. SIMVASTATIN. [Concomitant]
     Active Substance: SIMVASTATIN
     Route: 048
  4. PLAVIX [Concomitant]
     Active Substance: CLOPIDOGREL BISULFATE
     Route: 048
  5. TAREG [Concomitant]
     Active Substance: VALSARTAN
     Route: 048

REACTIONS (3)
  - Syncope [Recovering/Resolving]
  - Injury [Recovering/Resolving]
  - Orthostatic hypotension [Recovering/Resolving]

NARRATIVE: CASE EVENT DATE: 20170919
